FAERS Safety Report 7412071-9 (Version None)
Quarter: 2011Q2

REPORT INFORMATION
  Report Type: 
  Country: None (occurrence: None)
  Receive Date: 20110413
  Receipt Date: 20100909
  Transmission Date: 20111010
  Serious: Yes (Hospitalization, Other)
  Sender: FDA-Public Use
  Company Number: US-BAYER-201027255NA

PATIENT
  Age: 25 Year
  Sex: Female
  Weight: 88.435 kg

DRUGS (11)
  1. WELLBUTRIN XL [Concomitant]
     Indication: DEPRESSION
     Dosage: UNK UNK, BID
     Dates: start: 20040101
  2. SPIRONOLACTONE [Concomitant]
     Indication: POLYCYSTIC OVARIES
     Dosage: UNK
     Dates: start: 20060101, end: 20080101
  3. BUPROPION HYDROCHLORIDE [Concomitant]
     Indication: EX-TOBACCO USER
     Dosage: DAILY DOSE 150 MG
  4. SYNTHROID [Concomitant]
     Indication: THYROID DISORDER
     Dosage: DAILY DOSE .125 MG
     Dates: start: 20020101
  5. YAZ [Suspect]
     Indication: MENSTRUAL CYCLE MANAGEMENT
  6. CALCIUM [Concomitant]
     Dosage: DAILY DOSE 3500 MG
  7. FLUASTERONE VITAMINS [Concomitant]
     Dosage: UNK UNK, QID
  8. NSAID'S [Concomitant]
     Indication: PAIN
  9. YAZ [Suspect]
     Indication: CONTRACEPTION
     Dosage: UNK UNK, QD
     Route: 048
     Dates: start: 20060701, end: 20080701
  10. ANTIBIOTICS [Concomitant]
     Dosage: UNK
     Dates: start: 20060101, end: 20080101
  11. PROTEIN BUILDER [Concomitant]
     Dosage: DAILY DOSE 135 G

REACTIONS (8)
  - BILIARY COLIC [None]
  - NAUSEA [None]
  - CHEST PAIN [None]
  - GASTROOESOPHAGEAL REFLUX DISEASE [None]
  - CHOLELITHIASIS [None]
  - VOMITING [None]
  - CHOLECYSTITIS [None]
  - GALLBLADDER DISORDER [None]
